FAERS Safety Report 25636886 (Version 1)
Quarter: 2025Q3

REPORT INFORMATION
  Report Type: Report from Study
  Country: AE (occurrence: AE)
  Receive Date: 20250804
  Receipt Date: 20250804
  Transmission Date: 20251020
  Serious: No
  Sender: KARYOPHARM THERAPEUTICS
  Company Number: AE-KARYOPHARM-2025KPT100560

PATIENT
  Age: 39 Year
  Sex: Male

DRUGS (1)
  1. SELINEXOR [Suspect]
     Active Substance: SELINEXOR
     Indication: Plasma cell myeloma
     Route: 048
     Dates: start: 20250206, end: 20250306

REACTIONS (1)
  - Protein total increased [Unknown]

NARRATIVE: CASE EVENT DATE: 20250701
